FAERS Safety Report 10174565 (Version 1)
Quarter: 2014Q2

REPORT INFORMATION
  Report Type: Spontaneous
  Country: US (occurrence: None)
  Receive Date: 20140416
  Receipt Date: 20140416
  Transmission Date: 20141212
  Serious: No
  Sender: FDA-Public Use
  Company Number: 163-POMAL-14010126

PATIENT
  Age: 71 Year
  Sex: Female

DRUGS (2)
  1. POMALYST [Suspect]
     Indication: PLASMA CELL MYELOMA
     Route: 048
     Dates: start: 20130803
  2. DEXAMETHASONE (DEXAMETHASONE) (UNKNOWN) [Suspect]
     Indication: PLASMA CELL MYELOMA
     Dates: start: 201308

REACTIONS (4)
  - Somnolence [None]
  - Mastication disorder [None]
  - Muscle fatigue [None]
  - Myalgia [None]
